FAERS Safety Report 12516381 (Version 2)
Quarter: 2016Q3

REPORT INFORMATION
  Report Type: Spontaneous
  Country: CA (occurrence: CA)
  Receive Date: 20160630
  Receipt Date: 20160819
  Transmission Date: 20161109
  Serious: Yes (Life-Threatening, Hospitalization, Other)
  Sender: FDA-Public Use
  Company Number: CA-ASTRAZENECA-2016SE69791

PATIENT
  Age: 62 Year
  Sex: Female

DRUGS (2)
  1. FORXIGA [Suspect]
     Active Substance: DAPAGLIFLOZIN
     Indication: DIABETES MELLITUS
     Dosage: DAILY
     Route: 048
     Dates: start: 20160309, end: 20160507
  2. INSULIN [Concomitant]
     Active Substance: INSULIN NOS

REACTIONS (10)
  - Diabetic ketoacidosis [Unknown]
  - Treatment noncompliance [Unknown]
  - Vertigo positional [Unknown]
  - Asthenia [Unknown]
  - Pneumonia influenzal [Unknown]
  - Diabetic retinopathy [Unknown]
  - Acute kidney injury [Recovering/Resolving]
  - Metabolic acidosis [Recovered/Resolved]
  - Respiratory failure [Unknown]
  - Pneumonia [Unknown]

NARRATIVE: CASE EVENT DATE: 20160507
